FAERS Safety Report 5268151-X (Version None)
Quarter: 2007Q1

REPORT INFORMATION
  Report Type: 
  Country: None (occurrence: None)
  Receive Date: 20070319
  Receipt Date: 20070313
  Transmission Date: 20070707
  Serious: Yes (Other)
  Sender: FDA-Public Use
  Company Number: FR-BRISTOL-MYERS SQUIBB COMPANY-13707856

PATIENT
  Age: 75 Year
  Sex: Female

DRUGS (1)
  1. COAPROVEL TABS 150MG/12.5MG [Suspect]
     Route: 048
     Dates: start: 20070101

REACTIONS (2)
  - EPISTAXIS [None]
  - HEPATITIS [None]
